FAERS Safety Report 6357049-1 (Version None)
Quarter: 2009Q3

REPORT INFORMATION
  Report Type: 
  Country: None (occurrence: None)
  Receive Date: 20090915
  Receipt Date: 20090902
  Transmission Date: 20100115
  Serious: Yes (Other)
  Sender: FDA-Public Use
  Company Number: DE-GENENTECH-290165

PATIENT
  Age: 50 Year
  Sex: Female

DRUGS (2)
  1. AVASTIN [Suspect]
     Indication: UTERINE CANCER
     Dosage: UNK
     Route: 065
  2. TOPOTECAN [Concomitant]
     Indication: DRUG USE FOR UNKNOWN INDICATION
     Dosage: UNK

REACTIONS (1)
  - ASCITES [None]
